FAERS Safety Report 8235216-X (Version None)
Quarter: 2012Q1

REPORT INFORMATION
  Report Type: 
  Country: None (occurrence: None)
  Receive Date: 20120326
  Receipt Date: 20120321
  Transmission Date: 20120608
  Serious: Yes (Life-Threatening, Hospitalization)
  Sender: FDA-Public Use
  Company Number: ES-JNJFOC-20110502790

PATIENT
  Sex: Male
  Weight: 75 kg

DRUGS (2)
  1. SECALIP SUPRA [Concomitant]
     Indication: DYSLIPIDAEMIA
     Dates: start: 20090713
  2. STELARA [Suspect]
     Indication: PSORIASIS
     Route: 058
     Dates: start: 20100129

REACTIONS (1)
  - ACUTE MYOCARDIAL INFARCTION [None]
